FAERS Safety Report 4542110-4 (Version None)
Quarter: 2004Q4

REPORT INFORMATION
  Report Type: 
  Country: None (occurrence: None)
  Receive Date: 20041227
  Receipt Date: 20041213
  Transmission Date: 20050328
  Serious: Yes (Congenital Anomaly)
  Sender: FDA-Public Use
  Company Number: MK200412-0293-1

PATIENT

DRUGS (1)
  1. ANAFRANIL [Suspect]
     Dosage: TRANSPLACENTAL
     Route: 064
     Dates: end: 20041104

REACTIONS (3)
  - CEREBRAL CYST [None]
  - CONGENITAL ANOMALY [None]
  - DRUG EXPOSURE DURING PREGNANCY [None]
